FAERS Safety Report 5999451-3 (Version None)
Quarter: 2008Q4

REPORT INFORMATION
  Report Type: 
  Country: None (occurrence: None)
  Receive Date: 20081211
  Receipt Date: 20081211
  Transmission Date: 20090506
  Serious: Yes (Hospitalization)
  Sender: FDA-Public Use
  Company Number: None

PATIENT
  Sex: Female
  Weight: 75.2971 kg

DRUGS (5)
  1. ABRAXANE [Suspect]
     Indication: BREAST CANCER
     Dosage: 144MG WEEKLY X12 IV
     Route: 042
     Dates: start: 20081017, end: 20081203
  2. AVASTIN [Suspect]
     Indication: BREAST CANCER
     Dosage: 740MG Q 2WKS IV
     Route: 042
     Dates: start: 20081017, end: 20081203
  3. CARBOPLATIN [Suspect]
     Indication: BREAST CANCER
     Dosage: AUC=6 890MG Q3WKS X4 IV
     Route: 042
     Dates: start: 20081017
  4. CARBOPLATIN [Suspect]
     Indication: BREAST CANCER
     Dosage: AUC=6 890MG Q3WKS X4 IV
     Route: 042
     Dates: start: 20081106
  5. CARBOPLATIN [Suspect]
     Indication: BREAST CANCER
     Dosage: AUC=6 890MG Q3WKS X4 IV
     Route: 042
     Dates: start: 20081203

REACTIONS (2)
  - NAUSEA [None]
  - VOMITING [None]
